FAERS Safety Report 14443906 (Version 1)
Quarter: 2018Q1

REPORT INFORMATION
  Report Type: Spontaneous
  Country: US (occurrence: US)
  Receive Date: 20180125
  Receipt Date: 20180125
  Transmission Date: 20180509
  Serious: Yes (Death)
  Sender: FDA-Public Use
  Company Number: None

PATIENT
  Age: 92 Year
  Sex: Female

DRUGS (23)
  1. HYDRALAZINE [Concomitant]
     Active Substance: HYDRALAZINE HYDROCHLORIDE
  2. NYSTOP [Concomitant]
     Active Substance: NYSTATIN
  3. VANCOMYCIN [Concomitant]
     Active Substance: VANCOMYCIN
  4. LORAZEPAM. [Concomitant]
     Active Substance: LORAZEPAM
  5. CARTIA XT [Concomitant]
     Active Substance: DILTIAZEM HYDROCHLORIDE
  6. CITALOPRAM [Concomitant]
     Active Substance: CITALOPRAM HYDROBROMIDE
  7. FUROSEMIDE. [Concomitant]
     Active Substance: FUROSEMIDE
  8. HIGHPOT IRON [Concomitant]
  9. CALMOSEPTINE [Concomitant]
     Active Substance: MENTHOL\ZINC OXIDE
  10. DILT-XR [Concomitant]
     Active Substance: DILTIAZEM
  11. IRON [Concomitant]
     Active Substance: IRON
  12. CLONIDINE. [Concomitant]
     Active Substance: CLONIDINE
  13. METOPROLOL TARTRATE. [Concomitant]
     Active Substance: METOPROLOL TARTRATE
  14. MINOXIDIL. [Concomitant]
     Active Substance: MINOXIDIL
  15. POT CL [Concomitant]
  16. STOOL SOFTENER (DOCUSATE) [Concomitant]
     Active Substance: DOCUSATE
  17. ELIQUIS [Concomitant]
     Active Substance: APIXABAN
  18. NUPLAZID [Suspect]
     Active Substance: PIMAVANSERIN TARTRATE
     Indication: DEMENTIA WITH LEWY BODIES
     Route: 048
     Dates: start: 20171201, end: 201801
  19. LEVOFLOXACIN. [Concomitant]
     Active Substance: LEVOFLOXACIN
  20. LOSARTAN. [Concomitant]
     Active Substance: LOSARTAN
  21. PREDNISONE. [Concomitant]
     Active Substance: PREDNISONE
  22. HYDROMORPHON [Concomitant]
     Active Substance: HYDROMORPHONE
  23. LANTUS [Concomitant]
     Active Substance: INSULIN GLARGINE

REACTIONS (1)
  - Death [None]

NARRATIVE: CASE EVENT DATE: 20180113
